FAERS Safety Report 8605093-3 (Version None)
Quarter: 2012Q3

REPORT INFORMATION
  Report Type: 
  Country: None (occurrence: None)
  Receive Date: 20120820
  Receipt Date: 20120810
  Transmission Date: 20120928
  Serious: Yes (Other)
  Sender: FDA-Public Use
  Company Number: JP-PFIZER INC-2012118435

PATIENT
  Age: 74 Year
  Sex: Male

DRUGS (1)
  1. LATANOPROST [Suspect]
     Indication: OCULAR HYPERTENSION
     Dosage: UNK
     Route: 047
     Dates: start: 20091201, end: 20100712

REACTIONS (2)
  - CYSTOID MACULAR OEDEMA [None]
  - VISUAL ACUITY REDUCED [None]
